FAERS Safety Report 9017700 (Version 1)
Quarter: 2013Q1

REPORT INFORMATION
  Report Type: Spontaneous
  Country: US (occurrence: US)
  Receive Date: 20130118
  Receipt Date: 20130118
  Transmission Date: 20140127
  Serious: No
  Sender: FDA-Public Use
  Company Number: US-009507513-1301USA005502

PATIENT
  Sex: Male

DRUGS (4)
  1. SINGULAIR [Suspect]
     Indication: ASTHMA
     Dosage: 4 MG, QD
     Route: 048
     Dates: start: 201001, end: 20121228
  2. SINGULAIR [Suspect]
     Dosage: UNK
     Route: 048
     Dates: start: 20130107
  3. ZYRTEC [Concomitant]
  4. PULMICORT [Concomitant]

REACTIONS (5)
  - Crying [Recovering/Resolving]
  - Nervous system disorder [Recovering/Resolving]
  - Depression [Recovering/Resolving]
  - Malaise [Recovering/Resolving]
  - Mood altered [Recovering/Resolving]
